FAERS Safety Report 5446887-5 (Version None)
Quarter: 2007Q3

REPORT INFORMATION
  Report Type: 
  Country: None (occurrence: None)
  Receive Date: 20070802
  Receipt Date: 20070608
  Transmission Date: 20080115
  Serious: Yes (Other)
  Sender: FDA-Public Use
  Company Number: US-JNJFOC-20070401745

PATIENT
  Age: 6 Year
  Sex: Male
  Weight: 36.2878 kg

DRUGS (1)
  1. CHILDREN'S MOTRIN TROPICAL PUNCH ORAL (IBUPROFEN) SUSPENSION [Suspect]
     Indication: PYREXIA
     Dosage: 200 MG, 1 IN 1 TOTAL
     Dates: start: 20070324, end: 20070627

REACTIONS (1)
  - HYPERSENSITIVITY [None]
